FAERS Safety Report 20960040 (Version 2)
Quarter: 2022Q3

REPORT INFORMATION
  Report Type: Spontaneous
  Country: JP (occurrence: JP)
  Receive Date: 20220615
  Receipt Date: 20220713
  Transmission Date: 20221027
  Serious: Yes (Hospitalization)
  Sender: FDA-Public Use
  Company Number: JP-NOVARTISPH-NVSJ2022JP092150

PATIENT
  Sex: Male

DRUGS (3)
  1. INDACATEROL [Suspect]
     Active Substance: INDACATEROL
     Indication: Chronic obstructive pulmonary disease
     Dosage: 1 DOSAGE FORM
     Route: 055
  2. INDACATEROL [Suspect]
     Active Substance: INDACATEROL
     Dosage: 1 DOSAGE FORM
     Route: 048
  3. INDACATEROL [Suspect]
     Active Substance: INDACATEROL
     Dosage: 1 DOSAGE FORM
     Route: 055

REACTIONS (2)
  - Pneumonia bacterial [Recovered/Resolved]
  - Incorrect route of product administration [Recovered/Resolved]
